FAERS Safety Report 8472499-5 (Version None)
Quarter: 2012Q2

REPORT INFORMATION
  Report Type: 
  Country: None (occurrence: None)
  Receive Date: 20120627
  Receipt Date: 20120201
  Transmission Date: 20120825
  Serious: No
  Sender: FDA-Public Use
  Company Number: US-AMGEN-USASP2012007409

PATIENT
  Sex: Female

DRUGS (2)
  1. PROCRIT [Suspect]
     Indication: ANAEMIA
     Dosage: UNK UNK, QWK
     Dates: start: 19900101, end: 20120123
  2. PROCRIT [Suspect]
     Dosage: 20000 IU, QWK
     Dates: start: 20120124

REACTIONS (1)
  - LABORATORY TEST ABNORMAL [None]
